FAERS Safety Report 5527254-2 (Version None)
Quarter: 2007Q4

REPORT INFORMATION
  Report Type: 
  Country: None (occurrence: None)
  Receive Date: 20071128
  Receipt Date: 20071119
  Transmission Date: 20080405
  Serious: Yes (Other)
  Sender: FDA-Public Use
  Company Number: A0683381A

PATIENT
  Age: 43 Year
  Sex: Female
  Weight: 44 kg

DRUGS (10)
  1. FLOLAN [Suspect]
     Indication: PULMONARY HYPERTENSION
     Dosage: 8.5NGKM UNKNOWN
     Route: 042
     Dates: start: 20070706
  2. SILDENAFIL CITRATE [Suspect]
     Indication: PULMONARY HYPERTENSION
     Dosage: 20MG THREE TIMES PER DAY
     Route: 048
     Dates: start: 20070701, end: 20070913
  3. ASCORBIC ACID [Concomitant]
     Route: 048
  4. ARANESP [Concomitant]
     Route: 058
  5. DIGOXIN [Concomitant]
     Route: 048
  6. DOBUTAMINE HCL [Concomitant]
     Dosage: 7.5MCK CONTINUOUS
     Route: 042
     Dates: start: 20070708, end: 20071016
  7. COLACE [Concomitant]
     Route: 048
  8. NEXUM [Concomitant]
     Route: 048
  9. WARFARIN SODIUM [Concomitant]
     Route: 048
  10. AMBIEN [Concomitant]
     Route: 048

REACTIONS (2)
  - CHORIORETINOPATHY [None]
  - RETINAL EXUDATES [None]
